FAERS Safety Report 9099489 (Version 1)
Quarter: 2013Q1

REPORT INFORMATION
  Report Type: Spontaneous
  Country: US (occurrence: US)
  Receive Date: 20130213
  Receipt Date: 20130213
  Transmission Date: 20140127
  Serious: Yes (Other)
  Sender: FDA-Public Use
  Company Number: US-ALLERGAN-1212722US

PATIENT
  Age: 68 Year
  Sex: Male

DRUGS (2)
  1. OZURDEX [Suspect]
     Indication: RETINAL VEIN OCCLUSION
     Dosage: 0.7 MG, SINGLE
     Route: 031
     Dates: start: 20120530, end: 20120626
  2. OZURDEX [Suspect]
     Indication: CYSTOID MACULAR OEDEMA

REACTIONS (4)
  - Visual acuity reduced [Recovered/Resolved]
  - Device dislocation [Recovered/Resolved]
  - Corneal decompensation [Recovered/Resolved]
  - Intraocular pressure increased [Unknown]
